FAERS Safety Report 6629634-0 (Version None)
Quarter: 2010Q1

REPORT INFORMATION
  Report Type: 
  Country: None (occurrence: None)
  Receive Date: 20100311
  Receipt Date: 20100226
  Transmission Date: 20100710
  Serious: Yes (Other)
  Sender: FDA-Public Use
  Company Number: SE-PFIZER INC-2010025608

PATIENT
  Sex: Male

DRUGS (2)
  1. LYRICA [Suspect]
     Indication: PAIN
     Dosage: 75 MG, 2X/DAY
     Route: 048
     Dates: start: 20100202, end: 20100215
  2. LYRICA [Suspect]
     Dosage: 75 MG, 3X/DAY
     Dates: start: 20100216

REACTIONS (2)
  - MYALGIA [None]
  - PERIPHERAL COLDNESS [None]
